FAERS Safety Report 5669859-4 (Version None)
Quarter: 2008Q1

REPORT INFORMATION
  Report Type: 
  Country: None (occurrence: None)
  Receive Date: 20080317
  Receipt Date: 20080306
  Transmission Date: 20080703
  Serious: Yes (Other)
  Sender: FDA-Public Use
  Company Number: FR-PFIZER INC-2008014124

PATIENT
  Sex: Female
  Weight: 92 kg

DRUGS (8)
  1. LYRICA [Suspect]
     Indication: NEUROPATHY PERIPHERAL
     Route: 048
  2. LYRICA [Suspect]
     Indication: NEURALGIA
  3. PRETERAX [Concomitant]
     Indication: HYPERTENSION
     Route: 048
  4. FENOFIBRATE [Concomitant]
     Indication: HYPERTRIGLYCERIDAEMIA
     Route: 048
  5. PROGESTERONE [Concomitant]
     Indication: MENOPAUSE
     Route: 048
     Dates: start: 19960101
  6. ESTREVA [Concomitant]
     Indication: MENOPAUSE
     Dates: start: 19960101
  7. AERIUS [Concomitant]
     Indication: HYPERSENSITIVITY
     Route: 048
     Dates: start: 20040101
  8. DIALGIREX [Concomitant]
     Indication: PAIN
     Route: 048
     Dates: start: 20000101

REACTIONS (2)
  - HYPERGLYCAEMIA [None]
  - MICROALBUMINURIA [None]
